FAERS Safety Report 10583240 (Version 1)
Quarter: 2014Q4

REPORT INFORMATION
  Report Type: Spontaneous
  Country: US (occurrence: US)
  Receive Date: 20141114
  Receipt Date: 20141114
  Transmission Date: 20150529
  Serious: Yes (Other)
  Sender: FDA-Public Use
  Company Number: US-BRISTOL-MYERS SQUIBB COMPANY-21588793

PATIENT

DRUGS (2)
  1. ERBITUX [Suspect]
     Active Substance: CETUXIMAB
     Dosage: INTERR ON:10NOV14
     Route: 042
  2. 5-FU [Suspect]
     Active Substance: FLUOROURACIL

REACTIONS (1)
  - Cytopenia [Unknown]
